FAERS Safety Report 22056039 (Version 2)
Quarter: 2023Q1

REPORT INFORMATION
  Report Type: Report from Study
  Country: IL (occurrence: US)
  Receive Date: 20230302
  Receipt Date: 20230323
  Transmission Date: 20230417
  Serious: Yes (Other)
  Sender: FDA-Public Use
  Company Number: IL-GILEAD-2023-0618597

PATIENT
  Age: 68 Year
  Sex: Female

DRUGS (4)
  1. AXICABTAGENE CILOLEUCEL [Suspect]
     Active Substance: AXICABTAGENE CILOLEUCEL
     Indication: Diffuse large B-cell lymphoma
     Route: 065
  2. FLUDARABINE [Concomitant]
     Active Substance: FLUDARABINE PHOSPHATE
     Indication: Lymphodepletion
  3. CYCLOPHOSPHAMIDE [Concomitant]
     Active Substance: CYCLOPHOSPHAMIDE
     Indication: Lymphodepletion
  4. MEFLOQUINE [Concomitant]
     Active Substance: MEFLOQUINE

REACTIONS (6)
  - Progressive multifocal leukoencephalopathy [Unknown]
  - JC virus infection [Unknown]
  - Neutropenia [Unknown]
  - Hypogammaglobulinaemia [Unknown]
  - Cytokine release syndrome [Unknown]
  - Immune effector cell-associated neurotoxicity syndrome [Unknown]
